FAERS Safety Report 6790671-7 (Version None)
Quarter: 2010Q2

REPORT INFORMATION
  Report Type: 
  Country: None (occurrence: None)
  Receive Date: 20100624
  Receipt Date: 20100609
  Transmission Date: 20101027
  Serious: Yes (Hospitalization, Other)
  Sender: FDA-Public Use
  Company Number: DE-WYE-H03298208

PATIENT
  Sex: Male

DRUGS (3)
  1. PANTOZOL [Suspect]
     Indication: ABDOMINAL PAIN UPPER
     Route: 048
     Dates: start: 20080201, end: 20080101
  2. PANTOZOL [Interacting]
     Route: 048
     Dates: start: 20080330
  3. GLEEVEC [Interacting]
     Indication: CHRONIC MYELOID LEUKAEMIA
     Route: 048
     Dates: start: 20010101, end: 20100301

REACTIONS (5)
  - ANAEMIA [None]
  - CARDIAC DISORDER [None]
  - DRUG INTERACTION [None]
  - EPIGASTRIC DISCOMFORT [None]
  - LEUKOPENIA [None]
